FAERS Safety Report 21968255 (Version 2)
Quarter: 2023Q1

REPORT INFORMATION
  Report Type: Spontaneous
  Country: CA (occurrence: CA)
  Receive Date: 20230208
  Receipt Date: 20230321
  Transmission Date: 20230418
  Serious: Yes (Hospitalization, Other)
  Sender: FDA-Public Use
  Company Number: CA-002147023-NVSC2023CA021239

PATIENT
  Age: 67 Year
  Sex: Male

DRUGS (39)
  1. LEVOFLOXACIN [Suspect]
     Active Substance: LEVOFLOXACIN
     Indication: Product used for unknown indication
     Dosage: 1 DOSAGE FORM, QD
     Route: 065
  2. GLYCOPYRROLATE [Suspect]
     Active Substance: GLYCOPYRROLATE
     Indication: Product used for unknown indication
     Dosage: 1 DOSAGE FORM, QD
     Route: 065
  3. GLYCOPYRROLATE [Suspect]
     Active Substance: GLYCOPYRROLATE
     Dosage: 1 DOSAGE FORM, QID
     Route: 065
  4. GLYCOPYRROLATE [Suspect]
     Active Substance: GLYCOPYRROLATE
     Dosage: UNK, BID
     Route: 065
  5. GLYCOPYRROLATE [Suspect]
     Active Substance: GLYCOPYRROLATE
     Dosage: UNK
     Route: 065
  6. GLYCOPYRROLATE [Suspect]
     Active Substance: GLYCOPYRROLATE
     Dosage: 10 DOSAGE FORM, QD
     Route: 065
  7. ADVAIR HFA [Suspect]
     Active Substance: FLUTICASONE PROPIONATE\SALMETEROL XINAFOATE
     Indication: Product used for unknown indication
     Dosage: UNK
     Route: 065
  8. BREO ELLIPTA [Suspect]
     Active Substance: FLUTICASONE FUROATE\VILANTEROL TRIFENATATE
     Indication: Product used for unknown indication
     Dosage: 1 DOSAGE FORM, QD
  9. BUDESONIDE [Suspect]
     Active Substance: BUDESONIDE
     Indication: Product used for unknown indication
     Dosage: UNK, BID
  10. BUDESONIDE [Suspect]
     Active Substance: BUDESONIDE
     Dosage: UNK
  11. DYMISTA [Suspect]
     Active Substance: AZELASTINE HYDROCHLORIDE\FLUTICASONE PROPIONATE
     Indication: Product used for unknown indication
     Dosage: 2 DOSAGE FORM, BID (SPRAY, METERED DOSE) (SUSPENSION)
     Route: 065
  12. DYMISTA [Suspect]
     Active Substance: AZELASTINE HYDROCHLORIDE\FLUTICASONE PROPIONATE
     Dosage: 2 DOSAGE FORM, QD (SUSPENSION)
     Route: 065
  13. DYMISTA [Suspect]
     Active Substance: AZELASTINE HYDROCHLORIDE\FLUTICASONE PROPIONATE
     Dosage: 2 DOSAGE FORM, BID (SUSPENSION)
     Route: 065
  14. ALBUTEROL SULFATE\IPRATROPIUM BROMIDE [Suspect]
     Active Substance: ALBUTEROL SULFATE\IPRATROPIUM BROMIDE
     Indication: Product used for unknown indication
     Dosage: 1 DOSAGE FORM, QID
     Route: 065
  15. ALBUTEROL SULFATE\IPRATROPIUM BROMIDE [Suspect]
     Active Substance: ALBUTEROL SULFATE\IPRATROPIUM BROMIDE
     Dosage: 1 DOSAGE FORM
     Route: 065
  16. MEPOLIZUMAB [Suspect]
     Active Substance: MEPOLIZUMAB
     Indication: Product used for unknown indication
     Dosage: 100 MG
     Route: 065
  17. PREDNISONE [Suspect]
     Active Substance: PREDNISONE
     Indication: Product used for unknown indication
     Dosage: 5.5 MG, QD
     Route: 048
  18. PREDNISONE [Suspect]
     Active Substance: PREDNISONE
     Dosage: 2 MG
     Route: 065
  19. PREDNISONE [Suspect]
     Active Substance: PREDNISONE
     Dosage: 50 MG
     Route: 048
  20. PREDNISONE [Suspect]
     Active Substance: PREDNISONE
     Dosage: 5 MG
     Route: 048
  21. PREDNISONE [Suspect]
     Active Substance: PREDNISONE
     Dosage: 7 MG, QD
     Route: 048
  22. PULMICORT TURBUHALER [Suspect]
     Active Substance: BUDESONIDE
     Indication: Product used for unknown indication
     Dosage: 120 DOSAGE FORM
  23. PULMICORT TURBUHALER [Suspect]
     Active Substance: BUDESONIDE
     Dosage: 200 DOSAGE FORM
  24. SINGULAIR [Suspect]
     Active Substance: MONTELUKAST SODIUM
     Indication: Product used for unknown indication
     Dosage: UNK
     Route: 065
  25. SINGULAIR [Suspect]
     Active Substance: MONTELUKAST SODIUM
     Dosage: UNK, QD
     Route: 065
  26. SPIRIVA [Suspect]
     Active Substance: TIOTROPIUM BROMIDE MONOHYDRATE
     Indication: Product used for unknown indication
     Dosage: UNK
     Route: 065
  27. SPIRIVA [Suspect]
     Active Substance: TIOTROPIUM BROMIDE MONOHYDRATE
     Dosage: UNK
     Route: 065
  28. TRAMADOL [Suspect]
     Active Substance: TRAMADOL
     Indication: Product used for unknown indication
     Dosage: 30 DOSAGE FORM
     Route: 065
  29. TRAMADOL HYDROCHLORIDE [Suspect]
     Active Substance: TRAMADOL HYDROCHLORIDE
     Indication: Product used for unknown indication
     Dosage: 30 DOSAGE FORM
     Route: 065
  30. PREDNISONE [Suspect]
     Active Substance: PREDNISONE
     Indication: Product used for unknown indication
     Dosage: 400 MG, QID
     Route: 065
  31. LEVOFLOXACIN HEMIHYDRATE [Suspect]
     Active Substance: LEVOFLOXACIN
     Indication: Product used for unknown indication
     Dosage: 10 DOSAGE FORM, QD
     Route: 065
  32. ULTRAM [Suspect]
     Active Substance: TRAMADOL HYDROCHLORIDE
     Indication: Product used for unknown indication
     Dosage: 30 DOSAGE FORM
     Route: 065
  33. ZAFIRLUKAST [Suspect]
     Active Substance: ZAFIRLUKAST
     Indication: Product used for unknown indication
     Dosage: 20 MG, BID
     Route: 048
  34. ZAFIRLUKAST [Suspect]
     Active Substance: ZAFIRLUKAST
     Dosage: 2 DOSAGE FORM, QD
     Route: 048
  35. AMOXICILLIN AND CLAVULANATE POTASSIUM [Concomitant]
     Active Substance: AMOXICILLIN\CLAVULANATE POTASSIUM
     Indication: Product used for unknown indication
     Dosage: 1 DOSAGE FORM, BID
     Route: 065
  36. AMOXICILLIN AND CLAVULANATE POTASSIUM [Concomitant]
     Active Substance: AMOXICILLIN\CLAVULANATE POTASSIUM
     Dosage: 1 DOSAGE FORM, BID
     Route: 065
  37. AMOXICILLIN AND CLAVULANATE POTASSIUM [Concomitant]
     Active Substance: AMOXICILLIN\CLAVULANATE POTASSIUM
     Dosage: 42 DOSAGE FORM
     Route: 065
  38. AMOXICILLIN AND CLAVULANATE POTASSIUM [Concomitant]
     Active Substance: AMOXICILLIN\CLAVULANATE POTASSIUM
     Dosage: 10 DOSAGE FORM, BID
     Route: 065
  39. AMOXICILLIN AND CLAVULANATE POTASSIUM [Concomitant]
     Active Substance: AMOXICILLIN\CLAVULANATE POTASSIUM
     Dosage: 1 DOSAGE FORM, TID
     Route: 065

REACTIONS (29)
  - Aphonia [Unknown]
  - Asthma [Unknown]
  - Chest discomfort [Unknown]
  - Chills [Unknown]
  - Chronic sinusitis [Unknown]
  - Disease progression [Unknown]
  - Dry skin [Unknown]
  - Dyspnoea exertional [Unknown]
  - Emphysema [Unknown]
  - Fatigue [Unknown]
  - Hiatus hernia [Unknown]
  - Infection [Unknown]
  - Pneumonia [Unknown]
  - Precancerous condition [Unknown]
  - Condition aggravated [Recovered/Resolved]
  - Fungal test [Recovered/Resolved]
  - Prolonged expiration [Unknown]
  - Pulmonary mass [Unknown]
  - Respiratory disorder [Unknown]
  - Sputum discoloured [Unknown]
  - Sputum purulent [Unknown]
  - Upper respiratory tract infection [Unknown]
  - Wheezing [Unknown]
  - Productive cough [Unknown]
  - Cough [Recovered/Resolved]
  - Asthenia [Unknown]
  - Pyrexia [Unknown]
  - Tachycardia [Unknown]
  - Dyspnoea [Unknown]
